FAERS Safety Report 5883343-4 (Version None)
Quarter: 2008Q3

REPORT INFORMATION
  Report Type: 
  Country: None (occurrence: None)
  Receive Date: 20080910
  Receipt Date: 20080904
  Transmission Date: 20090109
  Serious: Yes (Life-Threatening)
  Sender: FDA-Public Use
  Company Number: 2008JP004029

PATIENT
  Age: 34 Year
  Sex: Male

DRUGS (1)
  1. TACROLIMUS [Suspect]
     Indication: RENAL TRANSPLANT
     Dosage: IV NOS
     Route: 042
     Dates: start: 20080903

REACTIONS (6)
  - BURNING SENSATION [None]
  - LOSS OF CONSCIOUSNESS [None]
  - RENAL TRANSPLANT [None]
  - RESPIRATORY ARREST [None]
  - SHOCK [None]
  - VOMITING [None]
